FAERS Safety Report 4374541-X (Version None)
Quarter: 2004Q2

REPORT INFORMATION
  Report Type: 
  Country: None (occurrence: None)
  Receive Date: 20040604
  Receipt Date: 20040524
  Transmission Date: 20050107
  Serious: Yes (Life-Threatening, Hospitalization)
  Sender: FDA-Public Use
  Company Number: S04-USA-03009-01

PATIENT
  Age: 47 Year
  Sex: Male

DRUGS (1)
  1. CELEXA [Suspect]
     Indication: DEPRESSION
     Dosage: 60 MG QD PO
     Route: 048
     Dates: end: 20040622

REACTIONS (5)
  - APALLIC SYNDROME [None]
  - BRAIN OEDEMA [None]
  - ELECTROLYTE IMBALANCE [None]
  - RESPIRATORY ARREST [None]
  - SEROTONIN SYNDROME [None]
